FAERS Safety Report 4484927-0 (Version None)
Quarter: 2004Q3

REPORT INFORMATION
  Report Type: 
  Country: None (occurrence: None)
  Receive Date: 20040921
  Receipt Date: 20030814
  Transmission Date: 20050211
  Serious: Yes (Other)
  Sender: FDA-Public Use
  Company Number: 163-20785-03080502

PATIENT
  Age: 55 Year
  Sex: Male
  Weight: 83 kg

DRUGS (3)
  1. THALOMID [Suspect]
     Indication: METASTASES TO CENTRAL NERVOUS SYSTEM
     Dosage: 200 MG, DAILY HS, ORAL
     Route: 048
     Dates: start: 20020226, end: 20030305
  2. DECADRON [Suspect]
     Indication: METASTASES TO CENTRAL NERVOUS SYSTEM
  3. RADIATION [Concomitant]

REACTIONS (6)
  - ABDOMINAL DISTENSION [None]
  - DISEASE PROGRESSION [None]
  - HEADACHE [None]
  - HYPOAESTHESIA [None]
  - OEDEMA [None]
  - WEIGHT INCREASED [None]
